FAERS Safety Report 4353888-7 (Version None)
Quarter: 2004Q2

REPORT INFORMATION
  Report Type: 
  Country: None (occurrence: None)
  Receive Date: 20040430
  Receipt Date: 20040419
  Transmission Date: 20050107
  Serious: Yes (Hospitalization, Other)
  Sender: FDA-Public Use
  Company Number: MAG-2004-0000239

PATIENT
  Age: 49 Year
  Sex: Female

DRUGS (10)
  1. MORPHINE SULFATE [Suspect]
     Indication: CANCER PAIN
     Dosage: SEE IMAGE
     Route: 048
     Dates: start: 20031019, end: 20040211
  2. MORPHINE SULFATE [Suspect]
     Indication: CANCER PAIN
     Dosage: SEE IMAGE
     Route: 048
     Dates: start: 20040212, end: 20040303
  3. MORPHINE SULFATE [Suspect]
     Indication: CANCER PAIN
     Dosage: SEE IMAGE
     Route: 048
     Dates: start: 20040304, end: 20040304
  4. LOXONIN (LOXOPROFEN SODIUM) [Concomitant]
  5. TEGRETOL [Concomitant]
  6. PREDNISOLONE [Concomitant]
  7. TAGAMET [Concomitant]
  8. RITALIN [Concomitant]
  9. NOVAMIN (PROCHLORPERAZINE) [Concomitant]
  10. DIOVANE (VALSARTAN) [Concomitant]

REACTIONS (3)
  - CONVULSION [None]
  - CYTOMEGALOVIRUS ENTERITIS [None]
  - DRUG EFFECT DECREASED [None]
